FAERS Safety Report 11003797 (Version 1)
Quarter: 2015Q2

REPORT INFORMATION
  Report Type: Spontaneous
  Country: US (occurrence: US)
  Receive Date: 20150409
  Receipt Date: 20150409
  Transmission Date: 20150821
  Serious: No
  Sender: FDA-Public Use
  Company Number: US-ASTRAZENECA-2015SE31822

PATIENT
  Age: 60 Year
  Sex: Male

DRUGS (2)
  1. CRESTOR [Suspect]
     Active Substance: ROSUVASTATIN CALCIUM
     Indication: HYPERLIPIDAEMIA
     Dosage: DECREASED THE UNKNOWN DOSAGE OF CRESTOR TO A LOWER UNKNOWN DOSAGE
     Route: 048
     Dates: start: 2014, end: 2015
  2. REMICADE [Concomitant]
     Active Substance: INFLIXIMAB
     Route: 041

REACTIONS (2)
  - Colitis ulcerative [Recovered/Resolved]
  - Rash [Unknown]

NARRATIVE: CASE EVENT DATE: 2014
